FAERS Safety Report 16629883 (Version 1)
Quarter: 2019Q3

REPORT INFORMATION
  Report Type: Spontaneous
  Country: CN (occurrence: CN)
  Receive Date: 20190725
  Receipt Date: 20190725
  Transmission Date: 20191004
  Serious: Yes (Other)
  Sender: FDA-Public Use
  Company Number: CN-ROCHE-2360094

PATIENT
  Age: 61 Year
  Sex: Male

DRUGS (12)
  1. HERCEPTIN [Suspect]
     Active Substance: TRASTUZUMAB
     Route: 065
     Dates: start: 20190429
  2. CALCIUM FOLINATE [Concomitant]
     Active Substance: LEUCOVORIN CALCIUM
     Indication: GASTRIC CANCER
     Route: 065
     Dates: start: 20180430, end: 20180817
  3. HERCEPTIN [Suspect]
     Active Substance: TRASTUZUMAB
     Indication: GASTRIC CANCER
     Route: 065
     Dates: start: 20171104, end: 20180406
  4. HERCEPTIN [Suspect]
     Active Substance: TRASTUZUMAB
     Route: 065
     Dates: start: 20180430, end: 20180817
  5. DOCETAXEL. [Concomitant]
     Active Substance: DOCETAXEL
     Indication: GASTRIC CANCER
     Route: 065
     Dates: start: 20171104, end: 20180406
  6. OXALIPLATIN. [Concomitant]
     Active Substance: OXALIPLATIN
     Indication: GASTRIC CANCER
     Route: 065
     Dates: start: 20180430, end: 20180817
  7. HERCEPTIN [Suspect]
     Active Substance: TRASTUZUMAB
     Route: 065
     Dates: start: 20180907
  8. TEGAFUR [Concomitant]
     Active Substance: TEGAFUR
     Dosage: DAY1-14
     Route: 065
     Dates: start: 20180907
  9. APATINIB [Concomitant]
     Active Substance: APATINIB
     Indication: GASTRIC CANCER
     Route: 065
     Dates: start: 20190429
  10. TEGAFUR [Concomitant]
     Active Substance: TEGAFUR
     Indication: GASTRIC CANCER
     Route: 065
     Dates: start: 20171104, end: 20180406
  11. OXYCODONE HYDROCHLORIDE. [Concomitant]
     Active Substance: OXYCODONE HYDROCHLORIDE
     Indication: GASTRIC CANCER
     Route: 048
     Dates: start: 20180101
  12. 5-FLUOROURACIL [FLUOROURACIL] [Concomitant]
     Active Substance: FLUOROURACIL
     Indication: GASTRIC CANCER
     Route: 065
     Dates: start: 20180430, end: 20180817

REACTIONS (1)
  - Impaired gastric emptying [Unknown]

NARRATIVE: CASE EVENT DATE: 2018
